FAERS Safety Report 13241419 (Version 1)
Quarter: 2017Q1

REPORT INFORMATION
  Report Type: Spontaneous
  Country: US (occurrence: US)
  Receive Date: 20170216
  Receipt Date: 20170216
  Transmission Date: 20170428
  Serious: Yes (Other)
  Sender: FDA-Public Use
  Company Number: None

PATIENT
  Age: 58 Year
  Sex: Female

DRUGS (1)
  1. STIVARGA [Suspect]
     Active Substance: REGORAFENIB
     Indication: NEOPLASM MALIGNANT
     Dosage: 160MG DAILY ON DAYS 1-21 OF 28 DAY CYCLE ORAL
     Route: 048
     Dates: start: 20170131, end: 20170214

REACTIONS (1)
  - Pain [None]

NARRATIVE: CASE EVENT DATE: 20170207
